FAERS Safety Report 8085995-X (Version None)
Quarter: 2012Q1

REPORT INFORMATION
  Report Type: 
  Country: None (occurrence: None)
  Receive Date: 20120128
  Receipt Date: 20110412
  Transmission Date: 20120608
  Serious: No
  Sender: FDA-Public Use
  Company Number: US-ABBOTT-11P-163-0718921-00

PATIENT
  Sex: Female
  Weight: 71.732 kg

DRUGS (7)
  1. LEUCOVORIN CALCIUM [Concomitant]
     Indication: SUPPLEMENTATION THERAPY
  2. LEVOXYL [Concomitant]
     Indication: HYPOTHYROIDISM
  3. PREDNISONE TAB [Concomitant]
     Indication: RHEUMATOID ARTHRITIS
  4. ATELVIA [Concomitant]
     Indication: OSTEOPOROSIS
  5. ADVAIR DISKUS 100/50 [Concomitant]
     Indication: CHRONIC OBSTRUCTIVE PULMONARY DISEASE
  6. HUMIRA [Suspect]
     Indication: RHEUMATOID ARTHRITIS
     Dates: start: 20110301
  7. METHOTREXATE [Concomitant]
     Indication: RHEUMATOID ARTHRITIS

REACTIONS (7)
  - HYPOAESTHESIA [None]
  - RAYNAUD'S PHENOMENON [None]
  - INFLUENZA [None]
  - PERIPHERAL COLDNESS [None]
  - ARTHRALGIA [None]
  - PAIN [None]
  - FATIGUE [None]
